FAERS Safety Report 8757783 (Version 1)
Quarter: 2012Q4

REPORT INFORMATION
  Report Type: 
  Country: DE (occurrence: DE)
  Receive Date: 20120828
  Receipt Date: 20120828
  Transmission Date: 20130627
  Serious: Yes (Death, Congenital Anomaly)
  Sender: FDA-Public Use
  Company Number: GXKR2012DE002718

PATIENT

DRUGS (2)
  1. SUMATRIPTAN [Suspect]
     Dosage: Maternal dose: on demand
     Route: 064
  2. FOLIC ACID W/IRON [Concomitant]
     Dosage: Maternal dose: 0.8 mg/d
     Route: 064

REACTIONS (2)
  - Renal aplasia [Fatal]
  - Foetal exposure during pregnancy [Unknown]
